FAERS Safety Report 5831784-3 (Version None)
Quarter: 2008Q3

REPORT INFORMATION
  Report Type: 
  Country: None (occurrence: None)
  Receive Date: 20080803
  Receipt Date: 20080724
  Transmission Date: 20090109
  Serious: Yes (Hospitalization)
  Sender: FDA-Public Use
  Company Number: CA-JNJFOC-20080706272

PATIENT
  Age: 80 Year
  Sex: Female

DRUGS (1)
  1. REMICADE [Suspect]
     Indication: RHEUMATOID ARTHRITIS
     Dosage: 33 TOTAL DOSES
     Route: 042

REACTIONS (3)
  - ATRIAL FIBRILLATION [None]
  - CYSTITIS [None]
  - PNEUMONIA PRIMARY ATYPICAL [None]
